FAERS Safety Report 21952170 (Version 3)
Quarter: 2023Q1

REPORT INFORMATION
  Report Type: Report from Study
  Country: US (occurrence: US)
  Receive Date: 20230203
  Receipt Date: 20230328
  Transmission Date: 20230418
  Serious: Yes (Hospitalization, Other)
  Sender: FDA-Public Use
  Company Number: US-GW PHARMA-2023-US-002472

PATIENT
  Age: 2 Year
  Sex: Female

DRUGS (2)
  1. EPIDIOLEX [Suspect]
     Active Substance: CANNABIDIOL
     Indication: Severe myoclonic epilepsy of infancy
     Dosage: 65 MILLIGRAM
     Route: 048
     Dates: start: 20220930
  2. EPIDIOLEX [Suspect]
     Active Substance: CANNABIDIOL
     Dosage: 0.65 MILLILITER TWICE DAILY
     Route: 048
     Dates: start: 202209

REACTIONS (4)
  - Rhinovirus infection [Unknown]
  - Viral infection [Unknown]
  - Seizure [Unknown]
  - Pneumonia [Unknown]

NARRATIVE: CASE EVENT DATE: 20230224
